FAERS Safety Report 11353216 (Version 1)
Quarter: 2015Q3

REPORT INFORMATION
  Report Type: Spontaneous
  Country: US (occurrence: US)
  Receive Date: 20150807
  Receipt Date: 20150807
  Transmission Date: 20151125
  Serious: No
  Sender: FDA-Public Use
  Company Number: US-JNJFOC-20140922937

PATIENT
  Age: 66 Year
  Sex: Female
  Weight: 76.66 kg

DRUGS (4)
  1. MENS ROGAINE EXTRA STRENGTH [Suspect]
     Active Substance: MINOXIDIL
     Indication: HAIR GROWTH ABNORMAL
     Dosage: ONE CAP FULL
     Route: 061
  2. PLATELET MEDICATION [Suspect]
     Active Substance: UNSPECIFIED INGREDIENT
     Indication: PLATELET COUNT INCREASED
     Route: 065
  3. BLOOD PRESSURE MEDICATION NOS [Concomitant]
     Active Substance: UNSPECIFIED INGREDIENT
     Indication: BLOOD PRESSURE MEASUREMENT
     Route: 065
  4. MENS ROGAINE EXTRA STRENGTH [Suspect]
     Active Substance: MINOXIDIL
     Route: 061

REACTIONS (2)
  - Drug prescribing error [Unknown]
  - Alopecia [Recovering/Resolving]
